FAERS Safety Report 4867670-5 (Version None)
Quarter: 2005Q4

REPORT INFORMATION
  Report Type: 
  Country: None (occurrence: None)
  Receive Date: 20051222
  Receipt Date: 20051201
  Transmission Date: 20060501
  Serious: Yes (Death, Hospitalization)
  Sender: FDA-Public Use
  Company Number: 8-99011-008X

PATIENT
  Age: 65 Year
  Sex: Male

DRUGS (8)
  1. MYLOTARG [Suspect]
     Indication: ACUTE MYELOID LEUKAEMIA
     Dosage: 9 MG/M(2), INTRAVENOUS
     Route: 042
     Dates: start: 19981110, end: 19981110
  2. SYNTHROID (LEVOTHYROXINE) (SYNTHROID (LEVOTHYROXINE)) [Concomitant]
  3. LOTREL (AMLODIPINE/BENAZEPRIL) (LOTREL (AMLODIPINE/BENAZEPRIL)) [Concomitant]
  4. EFFEXOR (VENLAFAXINE) (EFFEXOR (VENLAFAXINE)) [Concomitant]
  5. VOLTAREN (DICLOFENAC) (VOLTAREN DICLOFENAC)) [Concomitant]
  6. DIFLUCAN (FLUCONAZOLE) (DIFLUCAN (FLUCONAZOLE)) [Concomitant]
  7. CIPRO (CIPROFLOXACIN) (CIPRO (CIPROFLOXACIN)) [Concomitant]
  8. CARAFATE (SUCRALFATE) (CARAFATE (SUCRALFATE)) [Concomitant]

REACTIONS (35)
  - ACUTE MYELOID LEUKAEMIA RECURRENT [None]
  - AGITATION [None]
  - ARTHRALGIA [None]
  - ASCITES [None]
  - ASPERGILLOSIS [None]
  - ATELECTASIS [None]
  - BACTERIA BLOOD IDENTIFIED [None]
  - BACTERIAL INFECTION [None]
  - CANDIDIASIS [None]
  - CARDIAC FAILURE CONGESTIVE [None]
  - CATHETER SITE ERYTHEMA [None]
  - COMPUTERISED TOMOGRAM ABNORMAL [None]
  - CONFUSIONAL STATE [None]
  - DIARRHOEA [None]
  - EPISTAXIS [None]
  - EROSIVE OESOPHAGITIS [None]
  - FALL [None]
  - FATIGUE [None]
  - FUNGAL OESOPHAGITIS [None]
  - GASTROINTESTINAL HAEMORRHAGE [None]
  - GASTROOESOPHAGEAL REFLUX DISEASE [None]
  - HAEMOPTYSIS [None]
  - INTERVERTEBRAL DISC DEGENERATION [None]
  - LUMBAR SPINAL STENOSIS [None]
  - MUCOSAL INFLAMMATION [None]
  - NAUSEA [None]
  - NEUTROPENIA [None]
  - OEDEMA PERIPHERAL [None]
  - OESOPHAGEAL DISORDER [None]
  - ORAL CANDIDIASIS [None]
  - OSTEOARTHRITIS [None]
  - PLEURAL EFFUSION [None]
  - PYREXIA [None]
  - STAPHYLOCOCCAL INFECTION [None]
  - TENDERNESS [None]
